FAERS Safety Report 18219046 (Version 2)
Quarter: 2020Q3

REPORT INFORMATION
  Report Type: Spontaneous
  Country: US (occurrence: US)
  Receive Date: 20200901
  Receipt Date: 20200909
  Transmission Date: 20201103
  Serious: No
  Sender: FDA-Public Use
  Company Number: US-TEVA-2020-US-1819246

PATIENT
  Age: 57 Year
  Sex: Male

DRUGS (9)
  1. QVAR REDIHALER [Suspect]
     Active Substance: BECLOMETHASONE DIPROPIONATE
     Indication: ASTHMA
     Route: 055
     Dates: start: 202003
  2. LISINOPRIL. [Concomitant]
     Active Substance: LISINOPRIL
  3. MONTELUKAST [Concomitant]
     Active Substance: MONTELUKAST SODIUM
  4. URO?CIT?K [Concomitant]
  5. ALBUTEROL. [Concomitant]
     Active Substance: ALBUTEROL
  6. ALLOPURINOL. [Concomitant]
     Active Substance: ALLOPURINOL
  7. PRILOSEC OTC [Concomitant]
     Active Substance: OMEPRAZOLE MAGNESIUM
  8. CLARITIN [Concomitant]
     Active Substance: LORATADINE
  9. NORVASC [Concomitant]
     Active Substance: AMLODIPINE BESYLATE

REACTIONS (4)
  - Underdose [Unknown]
  - Asthma [Recovered/Resolved]
  - Middle insomnia [Recovered/Resolved]
  - Device delivery system issue [Unknown]

NARRATIVE: CASE EVENT DATE: 2020
